FAERS Safety Report 9070968 (Version 1)
Quarter: 2013Q1

REPORT INFORMATION
  Report Type: Report from Study
  Country: JP (occurrence: JP)
  Receive Date: 20130129
  Receipt Date: 20130129
  Transmission Date: 20140127
  Serious: Yes (Other)
  Sender: FDA-Public Use
  Company Number: JP-GLAXOSMITHKLINE-B0860323A

PATIENT
  Age: 9 None
  Sex: Male

DRUGS (4)
  1. LAMICTAL [Suspect]
     Indication: EPILEPSY
     Dosage: 4MG TWICE PER DAY
     Route: 048
     Dates: start: 20090623, end: 20090630
  2. MYSTAN [Concomitant]
     Indication: GRAND MAL CONVULSION
     Route: 048
  3. HYSERENIN [Concomitant]
     Indication: GRAND MAL CONVULSION
     Route: 048
     Dates: end: 20091019
  4. HYSERENIN [Concomitant]
     Indication: GRAND MAL CONVULSION
     Route: 048
     Dates: start: 20091020, end: 20091214

REACTIONS (1)
  - Hypothermia [Recovered/Resolved]
